FAERS Safety Report 18405251 (Version 2)
Quarter: 2020Q4

REPORT INFORMATION
  Report Type: Spontaneous
  Country: US (occurrence: US)
  Receive Date: 20201020
  Receipt Date: 20201125
  Transmission Date: 20210114
  Serious: Yes (Hospitalization)
  Sender: FDA-Public Use
  Company Number: US-STRIDES ARCOLAB LIMITED-2020SP012354

PATIENT
  Age: 45 Year
  Sex: Male

DRUGS (3)
  1. DOLUTEGRAVIR [Suspect]
     Active Substance: DOLUTEGRAVIR
     Indication: HIV INFECTION
     Dosage: UNK
     Route: 065
     Dates: start: 201706
  2. ABACAVIR. [Suspect]
     Active Substance: ABACAVIR
     Indication: HIV INFECTION
     Dosage: UNK
     Route: 065
     Dates: start: 201706
  3. LAMIVUDINE. [Suspect]
     Active Substance: LAMIVUDINE
     Indication: HIV INFECTION
     Dosage: UNK
     Route: 065
     Dates: start: 201706

REACTIONS (13)
  - Cerebral venous thrombosis [Unknown]
  - Pyrexia [Unknown]
  - Headache [Recovered/Resolved]
  - Transaminases increased [Unknown]
  - Lymphopenia [Unknown]
  - Superior sagittal sinus thrombosis [Recovered/Resolved]
  - Treatment noncompliance [Unknown]
  - Intracranial pressure increased [Recovered/Resolved]
  - Pneumonia cryptococcal [Recovered/Resolved]
  - Immune reconstitution inflammatory syndrome [Unknown]
  - Meningitis cryptococcal [Recovered/Resolved]
  - Dysphagia [Recovered/Resolved]
  - Vomiting [Unknown]

NARRATIVE: CASE EVENT DATE: 2017
